FAERS Safety Report 11636781 (Version 1)
Quarter: 2015Q4

REPORT INFORMATION
  Report Type: Spontaneous
  Country: US (occurrence: US)
  Receive Date: 20151016
  Receipt Date: 20151016
  Transmission Date: 20160304
  Serious: No
  Sender: FDA-Public Use
  Company Number: US-GALDERMA-US15007183

PATIENT
  Age: 30 Year
  Sex: Male

DRUGS (2)
  1. SOOLANTRA [Suspect]
     Active Substance: IVERMECTIN
     Dosage: 1%
     Route: 061
  2. SUN PROTECTION SPF 15 [Concomitant]
     Route: 061

REACTIONS (1)
  - Skin irritation [Unknown]
